FAERS Safety Report 19597247 (Version 1)
Quarter: 2021Q3

REPORT INFORMATION
  Report Type: Spontaneous
  Country: US (occurrence: US)
  Receive Date: 20210722
  Receipt Date: 20210722
  Transmission Date: 20211014
  Serious: No
  Sender: FDA-Public Use
  Company Number: US-PFIZER INC-2021646190

PATIENT
  Age: 83 Year
  Sex: Male

DRUGS (2)
  1. TEGSEDI [Suspect]
     Active Substance: INOTERSEN SODIUM
     Indication: AMYLOIDOSIS
     Dosage: 284 MG, QW
     Route: 058
  2. VYNDAMAX [Suspect]
     Active Substance: TAFAMIDIS
     Dosage: UNK
     Route: 048

REACTIONS (2)
  - Dyspnoea [Unknown]
  - Cardiac disorder [Unknown]
